FAERS Safety Report 17052182 (Version 7)
Quarter: 2020Q3

REPORT INFORMATION
  Report Type: Other
  Country: CA (occurrence: CA)
  Receive Date: 20191120
  Receipt Date: 20200910
  Transmission Date: 20201102
  Serious: Yes (Other)
  Sender: FDA-Public Use
  Company Number: CA-ROCHE-1703259

PATIENT
  Age: 75 Year
  Sex: Female

DRUGS (23)
  1. RITUXAN [Suspect]
     Active Substance: RITUXIMAB
     Route: 042
     Dates: start: 20180228
  2. SOLU?MEDROL [Concomitant]
     Active Substance: METHYLPREDNISOLONE SODIUM SUCCINATE
     Indication: PREMEDICATION
     Route: 042
     Dates: start: 20151021
  3. FOLIC ACID. [Concomitant]
     Active Substance: FOLIC ACID
  4. CELEBREX [Concomitant]
     Active Substance: CELECOXIB
  5. METHYLPREDNISOLONE. [Concomitant]
     Active Substance: METHYLPREDNISOLONE
     Indication: PREMEDICATION
     Route: 042
     Dates: start: 20151021
  6. TYLENOL [Concomitant]
     Active Substance: ACETAMINOPHEN
  7. BISOPROLOL [Concomitant]
     Active Substance: BISOPROLOL
     Dates: start: 20181004
  8. ZOCOR [Concomitant]
     Active Substance: SIMVASTATIN
  9. PREDNISONE. [Concomitant]
     Active Substance: PREDNISONE
  10. RITUXAN [Suspect]
     Active Substance: RITUXIMAB
     Route: 042
     Dates: end: 20191106
  11. METHOTREXATE. [Concomitant]
     Active Substance: METHOTREXATE
  12. ELIQUIS [Concomitant]
     Active Substance: APIXABAN
     Indication: ARRHYTHMIA
  13. OLMETEC [Concomitant]
     Active Substance: OLMESARTAN MEDOXOMIL
  14. MICARDIS PLUS [Concomitant]
     Active Substance: HYDROCHLOROTHIAZIDE\TELMISARTAN
  15. RITUXAN [Suspect]
     Active Substance: RITUXIMAB
     Indication: RHEUMATOID ARTHRITIS
     Route: 042
     Dates: start: 20151021, end: 20170208
  16. TYLENOL [Concomitant]
     Active Substance: ACETAMINOPHEN
     Indication: PREMEDICATION
     Route: 048
     Dates: start: 20151021
  17. METHYLPREDNISOLONE. [Concomitant]
     Active Substance: METHYLPREDNISOLONE
     Route: 042
     Dates: start: 20191023, end: 20191023
  18. RITUXAN [Suspect]
     Active Substance: RITUXIMAB
     Route: 042
     Dates: start: 20180320
  19. BENADRYL [Concomitant]
     Active Substance: DIPHENHYDRAMINE HYDROCHLORIDE
     Indication: PREMEDICATION
     Route: 048
     Dates: start: 20151021
  20. METHYLPREDNISOLONE. [Concomitant]
     Active Substance: METHYLPREDNISOLONE
     Route: 042
     Dates: start: 20191106
  21. RITUXAN [Suspect]
     Active Substance: RITUXIMAB
     Dosage: ONE DOSE ONLY
     Route: 042
     Dates: start: 20200429
  22. CALCIUM [Concomitant]
     Active Substance: CALCIUM
     Indication: PRODUCT USED FOR UNKNOWN INDICATION
  23. DEXILANT [Concomitant]
     Active Substance: DEXLANSOPRAZOLE
     Indication: ARRHYTHMIA

REACTIONS (38)
  - Postoperative wound infection [Recovered/Resolved]
  - Pain in extremity [Unknown]
  - C-reactive protein increased [Unknown]
  - Gait disturbance [Not Recovered/Not Resolved]
  - Oxygen saturation decreased [Unknown]
  - Pulmonary function test decreased [Unknown]
  - Arrhythmia [Unknown]
  - Cough [Recovered/Resolved]
  - Blood pressure fluctuation [Unknown]
  - Musculoskeletal stiffness [Unknown]
  - Joint swelling [Not Recovered/Not Resolved]
  - Body temperature increased [Recovered/Resolved]
  - Infusion related reaction [Unknown]
  - Joint dislocation [Not Recovered/Not Resolved]
  - Bronchitis [Unknown]
  - Disability assessment scale score increased [Unknown]
  - Syncope [Recovered/Resolved]
  - Hypotension [Not Recovered/Not Resolved]
  - Dizziness [Unknown]
  - Pain in extremity [Unknown]
  - Peripheral swelling [Not Recovered/Not Resolved]
  - Arthritis [Not Recovered/Not Resolved]
  - Therapeutic product effect decreased [Unknown]
  - Erythema [Recovered/Resolved]
  - Hypertension [Unknown]
  - Off label use [Unknown]
  - Dyspnoea [Not Recovered/Not Resolved]
  - Erythema [Recovered/Resolved]
  - Blood pressure diastolic abnormal [Unknown]
  - Dyspepsia [Unknown]
  - Arthralgia [Not Recovered/Not Resolved]
  - Dizziness [Not Recovered/Not Resolved]
  - Dyspnoea [Unknown]
  - Headache [Recovered/Resolved]
  - Blood pressure systolic increased [Unknown]
  - Blood pressure diastolic decreased [Unknown]
  - Intentional product use issue [Unknown]
  - Peripheral swelling [Unknown]

NARRATIVE: CASE EVENT DATE: 201512
